FAERS Safety Report 14326685 (Version 1)
Quarter: 2017Q4

REPORT INFORMATION
  Report Type: Spontaneous
  Country: US (occurrence: US)
  Receive Date: 20171226
  Receipt Date: 20171226
  Transmission Date: 20180321
  Serious: Yes (Other)
  Sender: FDA-Public Use
  Company Number: None

PATIENT
  Age: 61 Year
  Sex: Female
  Weight: 94.05 kg

DRUGS (7)
  1. GEMCITABINE [Concomitant]
     Active Substance: GEMCITABINE\GEMCITABINE HYDROCHLORIDE
  2. ALOXI [Concomitant]
     Active Substance: PALONOSETRON HYDROCHLORIDE
  3. CARBOPLATIN. [Concomitant]
     Active Substance: CARBOPLATIN
  4. DEXAMETHASONE. [Concomitant]
     Active Substance: DEXAMETHASONE
  5. LORAZEPAM. [Concomitant]
     Active Substance: LORAZEPAM
  6. DIPHENHYDRAMINE. [Concomitant]
     Active Substance: DIPHENHYDRAMINE
  7. VARUBI [Suspect]
     Active Substance: ROLAPITANT
     Dosage: ?          OTHER FREQUENCY:WITH EACH CHEMO;?
     Route: 041
     Dates: start: 20171219, end: 20171219

REACTIONS (2)
  - Flushing [None]
  - Pruritus [None]

NARRATIVE: CASE EVENT DATE: 20171219
